FAERS Safety Report 9452243 (Version 1)
Quarter: 2013Q3

REPORT INFORMATION
  Report Type: Other
  Country: US (occurrence: US)
  Receive Date: 20130812
  Receipt Date: 20130812
  Transmission Date: 20140515
  Serious: Yes (Other)
  Sender: FDA-Public Use
  Company Number: US-BRISTOL-MYERS SQUIBB COMPANY-19176353

PATIENT
  Sex: 0
  Weight: 2.16 kg

DRUGS (3)
  1. PACLITAXEL [Suspect]
     Route: 064
  2. ADRIAMYCIN [Suspect]
     Route: 064
  3. CYTOXAN [Suspect]
     Route: 064

REACTIONS (1)
  - Hyperbilirubinaemia [Unknown]
